FAERS Safety Report 12933533 (Version 1)
Quarter: 2016Q4

REPORT INFORMATION
  Report Type: Spontaneous
  Country: FR (occurrence: FR)
  Receive Date: 20161111
  Receipt Date: 20161111
  Transmission Date: 20170207
  Serious: Yes (Hospitalization)
  Sender: FDA-Public Use
  Company Number: FR-SA-2016SA199860

PATIENT
  Age: 32 Year
  Sex: Female

DRUGS (24)
  1. EXACYL [Suspect]
     Active Substance: TRANEXAMIC ACID
     Indication: HAEMOPTYSIS
     Route: 042
     Dates: start: 20160921, end: 20160929
  2. PIRILENE [Suspect]
     Active Substance: PYRAZINAMIDE
     Indication: TUBERCULOSIS
     Dosage: 2DF(2DF91 IN 1 DAY)
     Route: 048
     Dates: start: 20160914, end: 20161005
  3. PARACETAMOL [Suspect]
     Active Substance: ACETAMINOPHEN
     Route: 048
     Dates: start: 201608, end: 20161004
  4. RIFATER [Suspect]
     Active Substance: ISONIAZID\PYRAZINAMIDE\RIFAMPIN
     Indication: TUBERCULOSIS
     Route: 048
     Dates: start: 20160909, end: 20160914
  5. VFEND [Suspect]
     Active Substance: VORICONAZOLE
     Indication: ASPERGILLUS INFECTION
     Route: 048
     Dates: start: 20160916
  6. GAVISCON [Concomitant]
     Active Substance: ALUMINUM HYDROXIDE\MAGNESIUM CARBONATE
  7. CONTRAMAL [Concomitant]
     Active Substance: TRAMADOL HYDROCHLORIDE
  8. TRUVADA [Concomitant]
     Active Substance: EMTRICITABINE\TENOFOVIR DISOPROXIL FUMARATE
     Indication: HIV INFECTION
     Dosage: 200 MG/245 MG
     Route: 048
     Dates: start: 20160912
  9. RIMIFON [Concomitant]
     Active Substance: ISONIAZID
     Indication: TUBERCULOSIS
     Route: 048
     Dates: start: 20160914
  10. ANSATIPINE [Concomitant]
     Active Substance: RIFABUTIN
     Indication: TUBERCULOSIS
     Route: 048
     Dates: start: 20160914
  11. PRIMPERAN [Concomitant]
     Active Substance: METOCLOPRAMIDE HYDROCHLORIDE
  12. VITAMIN K1 [Concomitant]
     Active Substance: PHYTONADIONE
  13. RIFABUTIN. [Concomitant]
     Active Substance: RIFABUTIN
     Indication: TUBERCULOSIS
     Dates: start: 20160824, end: 20160907
  14. VFEND [Suspect]
     Active Substance: VORICONAZOLE
     Indication: ASPERGILLUS INFECTION
     Route: 048
     Dates: start: 20160924
  15. AMOXICILLINE [Suspect]
     Active Substance: AMOXICILLIN
     Indication: LUNG DISORDER
     Route: 042
     Dates: start: 20160909, end: 20160928
  16. ISONIAZIDE [Concomitant]
     Active Substance: ISONIAZID
     Indication: TUBERCULOSIS
     Dates: start: 20160824, end: 20160907
  17. VFEND [Suspect]
     Active Substance: VORICONAZOLE
     Indication: ASPERGILLUS INFECTION
     Route: 048
     Dates: start: 20160914
  18. VFEND [Suspect]
     Active Substance: VORICONAZOLE
     Indication: ASPERGILLUS INFECTION
     Route: 048
     Dates: start: 20160929, end: 20161004
  19. NORVIR [Concomitant]
     Active Substance: RITONAVIR
     Dates: end: 20160909
  20. TIVICAY [Concomitant]
     Active Substance: DOLUTEGRAVIR SODIUM
     Indication: HIV INFECTION
     Dosage: 50MG
     Route: 048
     Dates: start: 20160912
  21. ETHAMBUTOL [Concomitant]
     Active Substance: ETHAMBUTOL HYDROCHLORIDE
     Indication: TUBERCULOSIS
     Route: 048
     Dates: start: 20160909
  22. PREZISTA [Concomitant]
     Active Substance: DARUNAVIR ETHANOLATE
     Dates: end: 20160909
  23. TRIUMEQ [Concomitant]
     Active Substance: ABACAVIR SULFATE\DOLUTEGRAVIR SODIUM\LAMIVUDINE
     Indication: HIV INFECTION
     Dates: start: 20160909, end: 20160912
  24. VIREAD [Concomitant]
     Active Substance: TENOFOVIR DISOPROXIL FUMARATE
     Dates: start: 20160910, end: 20160912

REACTIONS (2)
  - Hepatocellular injury [Recovered/Resolved]
  - Cholestasis [Recovering/Resolving]

NARRATIVE: CASE EVENT DATE: 20160922
